FAERS Safety Report 19443303 (Version 1)
Quarter: 2021Q2

REPORT INFORMATION
  Report Type: Spontaneous
  Country: JP (occurrence: JP)
  Receive Date: 20210621
  Receipt Date: 20210621
  Transmission Date: 20210717
  Serious: Yes (Other)
  Sender: FDA-Public Use
  Company Number: JP-PFIZER INC-2021667019

PATIENT
  Age: 7 Decade
  Sex: Female

DRUGS (4)
  1. VELTUZUMAB. [Suspect]
     Active Substance: VELTUZUMAB
     Indication: HORMONE RECEPTOR POSITIVE BREAST CANCER
  2. EPIRUBICIN [Concomitant]
     Active Substance: EPIRUBICIN
     Indication: HORMONE RECEPTOR POSITIVE BREAST CANCER
  3. TRASTUZUMAB. [Suspect]
     Active Substance: TRASTUZUMAB
     Indication: HORMONE RECEPTOR POSITIVE BREAST CANCER
  4. CYCLOPHOSPHAMIDE. [Concomitant]
     Active Substance: CYCLOPHOSPHAMIDE
     Indication: HORMONE RECEPTOR POSITIVE BREAST CANCER

REACTIONS (1)
  - Cardiac dysfunction [Recovered/Resolved]
